FAERS Safety Report 25334669 (Version 1)
Quarter: 2025Q2

REPORT INFORMATION
  Report Type: Spontaneous
  Country: GB (occurrence: GB)
  Receive Date: 20250520
  Receipt Date: 20250520
  Transmission Date: 20250717
  Serious: Yes (Disabling, Other)
  Sender: ACCORD
  Company Number: None

PATIENT
  Age: 53 Year
  Sex: Female
  Weight: 142 kg

DRUGS (7)
  1. QUETIAPINE [Interacting]
     Active Substance: QUETIAPINE
     Indication: Psychotic disorder
     Dates: start: 20250102
  2. TIRZEPATIDE [Interacting]
     Active Substance: TIRZEPATIDE
     Indication: Weight decreased
     Dates: start: 20241213
  3. AMLODIPINE [Concomitant]
     Active Substance: AMLODIPINE BESYLATE
     Indication: Hypertension
  4. PREGABALIN [Concomitant]
     Active Substance: PREGABALIN
  5. PROMETHAZINE [Concomitant]
     Active Substance: PROMETHAZINE HYDROCHLORIDE
     Indication: Poor quality sleep
  6. SERTRALINE [Concomitant]
     Active Substance: SERTRALINE HYDROCHLORIDE
     Indication: Depression
  7. QVAR [Concomitant]
     Active Substance: BECLOMETHASONE DIPROPIONATE
     Indication: Asthma

REACTIONS (2)
  - Drug interaction [Not Recovered/Not Resolved]
  - Psychotic symptom [Not Recovered/Not Resolved]

NARRATIVE: CASE EVENT DATE: 20250415
